FAERS Safety Report 18453013 (Version 2)
Quarter: 2021Q3

REPORT INFORMATION
  Report Type: Spontaneous
  Country: PT (occurrence: PT)
  Receive Date: 20201102
  Receipt Date: 20210709
  Transmission Date: 20211014
  Serious: Yes (Death, Hospitalization, Other)
  Sender: FDA-Public Use
  Company Number: PT-MYLANLABS-2020M1091013

PATIENT
  Age: 40 Year
  Sex: Male

DRUGS (5)
  1. ETOPOSIDE. [Suspect]
     Active Substance: ETOPOSIDE
     Indication: FOLLICULAR LYMPHOMA
     Dosage: UNK, COMPLETED 7 DAYS OF THERAPY
  2. CYCLOPHOSPHAMIDE. [Suspect]
     Active Substance: CYCLOPHOSPHAMIDE
     Indication: FOLLICULAR LYMPHOMA
     Dosage: UNK, COMPLETED 7 DAYS OF THERAPY
  3. PREDNISOLONE. [Suspect]
     Active Substance: PREDNISOLONE
     Indication: FOLLICULAR LYMPHOMA
     Dosage: UNK, COMPLETED 7 DAYS OF THERAPY
  4. RITUXIMAB. [Suspect]
     Active Substance: RITUXIMAB
     Indication: B-CELL LYMPHOMA
     Dosage: UNK, COMPLETED 7 DAYS OF THERAPY
  5. PROCARBAZINE [Suspect]
     Active Substance: PROCARBAZINE
     Indication: FOLLICULAR LYMPHOMA
     Dosage: UNK, COMPLETED 7 DAYS OF THERAPY

REACTIONS (5)
  - Brain oedema [Fatal]
  - Haematotoxicity [Fatal]
  - Cerebral haematoma [Fatal]
  - Condition aggravated [Fatal]
  - Seizure [Fatal]
